FAERS Safety Report 5743523-5 (Version None)
Quarter: 2008Q2

REPORT INFORMATION
  Report Type: 
  Country: None (occurrence: None)
  Receive Date: 20080519
  Receipt Date: 20080519
  Transmission Date: 20081010
  Serious: Yes (Other)
  Sender: FDA-Public Use
  Company Number: None

PATIENT
  Age: 9 Year
  Sex: Female
  Weight: 34.0198 kg

DRUGS (1)
  1. VYVANSE [Suspect]
     Indication: ILL-DEFINED DISORDER
     Dosage: 1 CAPSULE EVERY MORNING PO
     Route: 048
     Dates: start: 20080415, end: 20080518

REACTIONS (4)
  - DRUG INEFFECTIVE [None]
  - INCORRECT DOSE ADMINISTERED [None]
  - MEDICATION TAMPERING [None]
  - PHARMACEUTICAL PRODUCT COMPLAINT [None]
